FAERS Safety Report 25183276 (Version 1)
Quarter: 2025Q2

REPORT INFORMATION
  Report Type: Spontaneous
  Country: BR (occurrence: BR)
  Receive Date: 20250410
  Receipt Date: 20250410
  Transmission Date: 20250716
  Serious: Yes (Life-Threatening)
  Sender: MICRO LABS
  Company Number: BR-862174955-ML2025-01763

PATIENT
  Age: 38 Week
  Sex: Female

DRUGS (4)
  1. CAFFEINE [Suspect]
     Active Substance: CAFFEINE
     Indication: Nervous system disorder
     Dosage: LOADING DOSE
  2. CAFFEINE [Suspect]
     Active Substance: CAFFEINE
     Dosage: MAINTENANCE DOSE
  3. CLARITHROMYCIN [Suspect]
     Active Substance: CLARITHROMYCIN
     Indication: Respiratory tract infection
     Dosage: STARTED VIA NASODUODENAL TUBE
  4. CLARITHROMYCIN [Suspect]
     Active Substance: CLARITHROMYCIN
     Indication: Lung opacity

REACTIONS (3)
  - Hyperlactacidaemia [Recovered/Resolved]
  - Metabolic acidosis [Unknown]
  - Drug interaction [Unknown]
